FAERS Safety Report 19963024 (Version 1)
Quarter: 2021Q4

REPORT INFORMATION
  Report Type: Report from Study
  Country: US (occurrence: US)
  Receive Date: 20211018
  Receipt Date: 20211018
  Transmission Date: 20220303
  Serious: Yes (Hospitalization)
  Sender: FDA-Public Use
  Company Number: US-BAYER-2021A231752

PATIENT
  Age: 72 Year
  Sex: Female

DRUGS (4)
  1. ADEMPAS [Suspect]
     Active Substance: RIOCIGUAT
     Indication: Pulmonary arterial hypertension
     Dosage: UNK
  2. ADEMPAS [Suspect]
     Active Substance: RIOCIGUAT
     Indication: Pulmonary arterial hypertension
     Dosage: 2.5 MG, TID
     Route: 048
     Dates: start: 20151210
  3. PIQRAY [Concomitant]
     Active Substance: ALPELISIB
     Indication: Breast cancer female
     Dosage: UNK UNK, QD
  4. PIQRAY [Concomitant]
     Active Substance: ALPELISIB
     Indication: Metastases to bone

REACTIONS (3)
  - Hospitalisation [None]
  - Diarrhoea [None]
  - Decreased appetite [None]

NARRATIVE: CASE EVENT DATE: 20210301
